FAERS Safety Report 22114558 (Version 5)
Quarter: 2023Q2

REPORT INFORMATION
  Report Type: Report from Study
  Country: JP (occurrence: JP)
  Receive Date: 20230320
  Receipt Date: 20230424
  Transmission Date: 20230722
  Serious: Yes (Hospitalization)
  Sender: FDA-Public Use
  Company Number: JP-ASTELLAS-2023US008928

PATIENT
  Age: 68 Year
  Sex: Male
  Weight: 60 kg

DRUGS (10)
  1. ENZALUTAMIDE [Suspect]
     Active Substance: ENZALUTAMIDE
     Indication: Hormone-dependent prostate cancer
     Route: 048
     Dates: start: 20230125
  2. ENZALUTAMIDE [Suspect]
     Active Substance: ENZALUTAMIDE
     Route: 048
     Dates: start: 20230223, end: 20230228
  3. DEGARELIX [Suspect]
     Active Substance: DEGARELIX
     Indication: Hormone-dependent prostate cancer
     Route: 058
     Dates: start: 20230125
  4. DEGARELIX [Suspect]
     Active Substance: DEGARELIX
     Route: 058
     Dates: start: 20230222, end: 20230222
  5. CLOPIDOGREL BISULFATE [Concomitant]
     Active Substance: CLOPIDOGREL BISULFATE
     Indication: Product used for unknown indication
     Dosage: UNK UNK, UNKNOWN FREQ.
     Route: 065
     Dates: start: 20210517, end: 20230301
  6. PITAVASTATIN CALCIUM [Concomitant]
     Active Substance: PITAVASTATIN CALCIUM
     Indication: Product used for unknown indication
     Dosage: UNK UNK, UNKNOWN FREQ.
     Route: 065
     Dates: start: 20210517
  7. ECABET SODIUM [Concomitant]
     Active Substance: ECABET SODIUM
     Indication: Chronic gastritis
     Dosage: UNK UNK, UNKNOWN FREQ.
     Route: 065
     Dates: start: 20221102, end: 20230307
  8. VONOPRAZAN FUMARATE [Concomitant]
     Active Substance: VONOPRAZAN FUMARATE
     Indication: Gastrooesophageal reflux disease
     Dosage: UNK UNK, UNKNOWN FREQ.
     Route: 065
     Dates: start: 20221102, end: 20230302
  9. IOPAMIDOL [Concomitant]
     Active Substance: IOPAMIDOL
     Indication: Product used for unknown indication
     Dosage: UNK UNK, UNKNOWN FREQ.
     Route: 065
     Dates: start: 20230222, end: 20230222
  10. LEVOFLOXACIN HEMIHYDRATE [Concomitant]
     Active Substance: LEVOFLOXACIN
     Indication: Product used for unknown indication
     Dosage: UNK UNK, UNKNOWN FREQ.
     Route: 065
     Dates: start: 20230222, end: 20230228

REACTIONS (2)
  - Pneumonitis [Recovered/Resolved]
  - Diarrhoea [Recovered/Resolved]

NARRATIVE: CASE EVENT DATE: 20230301
